FAERS Safety Report 7571340-2 (Version None)
Quarter: 2011Q2

REPORT INFORMATION
  Report Type: 
  Country: None (occurrence: None)
  Receive Date: 20110624
  Receipt Date: 20110614
  Transmission Date: 20111010
  Serious: Yes (Death)
  Sender: FDA-Public Use
  Company Number: B0726120A

PATIENT
  Sex: Female

DRUGS (11)
  1. RAMIPRIL [Concomitant]
     Route: 065
  2. ZOLPIDEM [Concomitant]
     Route: 065
  3. ARIXTRA [Suspect]
     Indication: NEPHROTIC SYNDROME
     Dosage: 7.5MG PER DAY
     Route: 058
     Dates: start: 20110428, end: 20110507
  4. SOLU-MEDROL [Concomitant]
     Dosage: 48MG PER DAY
     Route: 065
  5. AMLODIPINE [Concomitant]
     Route: 065
  6. ATARAX [Concomitant]
     Route: 065
  7. POTASSIUM CHLORIDE [Concomitant]
     Route: 065
  8. ATORVASTATIN CALCIUM [Concomitant]
     Route: 065
  9. OROCAL [Concomitant]
     Route: 065
  10. ACETAMINOPHEN AND TRAMADOL HCL [Concomitant]
     Route: 065
  11. PLAQUENIL [Concomitant]
     Route: 065

REACTIONS (6)
  - COMA [None]
  - HYPERTENSION [None]
  - HEADACHE [None]
  - CEREBRAL HAEMORRHAGE [None]
  - CEREBRAL HAEMATOMA [None]
  - OFF LABEL USE [None]
